FAERS Safety Report 8607821 (Version 4)
Quarter: 2014Q2

REPORT INFORMATION
  Report Type: Spontaneous
  Country: US (occurrence: US)
  Receive Date: 20120611
  Receipt Date: 20140415
  Transmission Date: 20141212
  Serious: Yes (Hospitalization, Disabling, Other)
  Sender: FDA-Public Use
  Company Number: US-ASTRAZENECA-2012SE35282

PATIENT
  Age: 50 Year
  Sex: Female

DRUGS (15)
  1. NEXIUM [Suspect]
     Indication: DYSPEPSIA
     Dosage: 40 MG, ONCE A DAY SOMETIMES 2 TIMES A DAY
     Route: 048
     Dates: start: 2004, end: 2010
  2. NEXIUM [Suspect]
     Indication: GASTROOESOPHAGEAL REFLUX DISEASE
     Dosage: 40 MG, ONCE A DAY SOMETIMES 2 TIMES A DAY
     Route: 048
     Dates: start: 2004, end: 2010
  3. NEXIUM [Suspect]
     Indication: DYSPEPSIA
     Route: 048
     Dates: start: 20080718
  4. NEXIUM [Suspect]
     Indication: GASTROOESOPHAGEAL REFLUX DISEASE
     Route: 048
     Dates: start: 20080718
  5. PREVACID [Concomitant]
  6. PEPTO BISMOL [Concomitant]
  7. COSOPT [Concomitant]
     Dosage: 2 TIMES A DAY RIGHT EYE
  8. ALPHAGAN [Concomitant]
     Dosage: 2 TIMES A DAY RIGHT EYE
  9. LUMIGAN [Concomitant]
     Dosage: AT BED TIME 1 DROP RIGHT EYE
  10. PREDNISOLON [Concomitant]
     Dosage: 1 TIMES A DAY LEFT EYE
  11. TIMOLOL [Concomitant]
     Dosage: 2 TIMES A DAY LEFT EYE
  12. PRAVASTATIN [Concomitant]
     Dosage: 1 PILL AT BED TIME
  13. VITAMIN D [Concomitant]
  14. MONTELUKAST [Concomitant]
     Dates: start: 20080811
  15. DICYCLOMINE [Concomitant]
     Dates: start: 20090105

REACTIONS (14)
  - Hip fracture [Unknown]
  - Blindness [Unknown]
  - Rotator cuff syndrome [Unknown]
  - Gallbladder disorder [Unknown]
  - Eye disorder [Unknown]
  - Osteoporosis [Unknown]
  - Multiple fractures [Unknown]
  - Arthralgia [Unknown]
  - Bone disorder [Unknown]
  - Calcium deficiency [Unknown]
  - Cataract [Unknown]
  - Vitamin D deficiency [Unknown]
  - Osteopenia [Unknown]
  - Depression [Unknown]
